FAERS Safety Report 4863239-7 (Version None)
Quarter: 2005Q4

REPORT INFORMATION
  Report Type: 
  Country: None (occurrence: None)
  Receive Date: 20051219
  Receipt Date: 20051205
  Transmission Date: 20060501
  Serious: Yes (Other)
  Sender: FDA-Public Use
  Company Number: 2005166431

PATIENT
  Age: 37 Year
  Sex: Female

DRUGS (1)
  1. FLAGYL [Suspect]
     Indication: VAGINITIS BACTERIAL
     Dosage: 1000 MG (500 MG, BID INTERVAL: DAILY), ORAL
     Route: 048
     Dates: start: 20051201

REACTIONS (1)
  - DEPRESSED LEVEL OF CONSCIOUSNESS [None]
